FAERS Safety Report 9806175 (Version 4)
Quarter: 2014Q2

REPORT INFORMATION
  Report Type: Spontaneous
  Country: US (occurrence: US)
  Receive Date: 20140109
  Receipt Date: 20140515
  Transmission Date: 20141212
  Serious: No
  Sender: FDA-Public Use
  Company Number: US-PFIZER INC-2014003704

PATIENT
  Age: 52 Year
  Sex: Female

DRUGS (2)
  1. XELJANZ [Suspect]
     Indication: RHEUMATOID ARTHRITIS
     Dosage: 5 MG, 1-2 DAILY, TWICE DAILY(BID) FOR 4 MONTHS
     Route: 048
     Dates: start: 20130514, end: 201311
  2. XELJANZ [Suspect]
     Dosage: 5 MG, 2X/DAY (BID) FOR 4 MONTHS
     Dates: start: 2013, end: 20131212

REACTIONS (4)
  - Blood urine present [Recovered/Resolved]
  - Urinary tract infection [Recovered/Resolved]
  - Dysuria [Recovered/Resolved]
  - Haematuria [Recovered/Resolved]
